FAERS Safety Report 4634758-3 (Version None)
Quarter: 2005Q2

REPORT INFORMATION
  Report Type: 
  Country: None (occurrence: None)
  Receive Date: 20050412
  Receipt Date: 20050331
  Transmission Date: 20051028
  Serious: Yes (Other)
  Sender: FDA-Public Use
  Company Number: SUSI-2005-00240

PATIENT
  Age: 64 Year
  Sex: Female
  Weight: 57.7 kg

DRUGS (11)
  1. FORSENOL (LANTHANUM CARBONATE) TABLET CHEWABLE [Suspect]
     Indication: HYPERPHOSPHATAEMIA
     Dosage: 1000 MG, 2X/DAY; BID, ORAL
     Route: 048
     Dates: start: 20050322
  2. NORVASC/DEN/ (AMLODIPINE B ESILATE) [Concomitant]
  3. AMITRIPTYLINE HCL [Concomitant]
  4. LANTUS [Concomitant]
  5. LASIX [Concomitant]
  6. SODIUM BICARBONATE IN PLASTIC CONTAINER [Concomitant]
  7. NEPHROCAPS (FOLIC ACID, VITAMINS NOS) [Concomitant]
  8. LIPRAM (PANCRELIPASE) [Concomitant]
  9. SYNTHROID [Concomitant]
  10. APRESOLNE (HYDRALAZINE HYDROCHLORIDE) [Concomitant]
  11. ZOLOFT [Concomitant]

REACTIONS (4)
  - HYPOCALCAEMIA [None]
  - NAUSEA [None]
  - NERVOUSNESS [None]
  - PARAESTHESIA [None]
